FAERS Safety Report 15204228 (Version 2)
Quarter: 2018Q3

REPORT INFORMATION
  Report Type: Spontaneous
  Country: US (occurrence: US)
  Receive Date: 20180726
  Receipt Date: 20180828
  Transmission Date: 20181010
  Serious: No
  Sender: FDA-Public Use
  Company Number: US-GLAXOSMITHKLINE-US2018129577

PATIENT
  Age: 74 Year
  Sex: Female

DRUGS (1)
  1. NUCALA [Suspect]
     Active Substance: MEPOLIZUMAB
     Indication: ASTHMA
     Dosage: 100 MG, CYC
     Route: 058
     Dates: start: 20180521

REACTIONS (6)
  - Sensory disturbance [Recovering/Resolving]
  - Tenderness [Not Recovered/Not Resolved]
  - Fatigue [Unknown]
  - Drug ineffective [Unknown]
  - Swelling face [Recovering/Resolving]
  - Mass [Unknown]

NARRATIVE: CASE EVENT DATE: 20180820
